FAERS Safety Report 11193692 (Version 1)
Quarter: 2015Q2

REPORT INFORMATION
  Report Type: Spontaneous
  Country: US (occurrence: US)
  Receive Date: 20150616
  Receipt Date: 20150616
  Transmission Date: 20150821
  Serious: Yes (Other)
  Sender: FDA-Public Use
  Company Number: US-TAKEDA-2014MPI001791

PATIENT
  Age: 64 Year
  Sex: Female
  Weight: 73.47 kg

DRUGS (2)
  1. RITUXAN [Suspect]
     Active Substance: RITUXIMAB
     Indication: WALDENSTROM^S MACROGLOBULINAEMIA
     Dosage: UNK, EVERY 5TH WEEK
     Route: 042
     Dates: start: 201402
  2. VELCADE [Suspect]
     Active Substance: BORTEZOMIB
     Indication: WALDENSTROM^S MACROGLOBULINAEMIA
     Dosage: UNK UNK, 1/WEEK
     Route: 058
     Dates: start: 201402, end: 20140430

REACTIONS (2)
  - Neuropathy peripheral [Not Recovered/Not Resolved]
  - Product use issue [Unknown]

NARRATIVE: CASE EVENT DATE: 201405
